FAERS Safety Report 15484150 (Version 1)
Quarter: 2018Q4

REPORT INFORMATION
  Report Type: Spontaneous
  Country: US (occurrence: US)
  Receive Date: 20181010
  Receipt Date: 20181010
  Transmission Date: 20190205
  Serious: No
  Sender: FDA-Public Use
  Company Number: None

PATIENT
  Age: 35 Year
  Sex: Female
  Weight: 76.5 kg

DRUGS (4)
  1. GONAL-F [Concomitant]
     Active Substance: FOLLITROPIN
  2. MENOPUR [Suspect]
     Active Substance: FOLLITROPIN\LUTEINIZING HORMONE
     Indication: IN VITRO FERTILISATION
     Dosage: ?          QUANTITY:2 INJECTION(S);?
     Route: 058
  3. PRENATAL VITAMINS [Concomitant]
     Active Substance: VITAMINS
  4. GANIRELIX [Concomitant]
     Active Substance: GANIRELIX

REACTIONS (6)
  - Nausea [None]
  - Loss of personal independence in daily activities [None]
  - Vision blurred [None]
  - Migraine [None]
  - Arthralgia [None]
  - Fluid retention [None]

NARRATIVE: CASE EVENT DATE: 20181007
